FAERS Safety Report 9194157 (Version 1)
Quarter: 2013Q1

REPORT INFORMATION
  Report Type: Spontaneous
  Country: US (occurrence: US)
  Receive Date: 20130327
  Receipt Date: 20130327
  Transmission Date: 20140127
  Serious: Yes (Hospitalization, Other)
  Sender: FDA-Public Use
  Company Number: CHPA2013US005048

PATIENT
  Age: 84 Year
  Sex: Male

DRUGS (4)
  1. EXCEDRIN UNKNOWN [Suspect]
     Indication: HEADACHE
     Dosage: UNK, QD OR BID
     Route: 048
  2. BABY ASPIRIN [Concomitant]
  3. CHOLESTROL MANAGER [Concomitant]
  4. ANTIHYPERTENSIVES [Concomitant]

REACTIONS (8)
  - Silent myocardial infarction [Recovered/Resolved]
  - Myocardial ischaemia [Recovered/Resolved]
  - Coronary artery disease [Recovered/Resolved]
  - Glaucoma [Not Recovered/Not Resolved]
  - Hypothyroidism [Not Recovered/Not Resolved]
  - Angiogram peripheral abnormal [Unknown]
  - Headache [Not Recovered/Not Resolved]
  - Disease recurrence [Not Recovered/Not Resolved]
